FAERS Safety Report 13350538 (Version 1)
Quarter: 2017Q1

REPORT INFORMATION
  Report Type: Spontaneous
  Country: US (occurrence: US)
  Receive Date: 20170320
  Receipt Date: 20170320
  Transmission Date: 20170429
  Serious: Yes (Other)
  Sender: FDA-Public Use
  Company Number: US-JNJFOC-20170319266

PATIENT
  Sex: Female
  Weight: 110.66 kg

DRUGS (5)
  1. XARELTO [Suspect]
     Active Substance: RIVAROXABAN
     Indication: PRODUCT USED FOR UNKNOWN INDICATION
     Route: 048
  2. OPSUMIT [Concomitant]
     Active Substance: MACITENTAN
     Route: 065
  3. ADEMPAS [Suspect]
     Active Substance: RIOCIGUAT
     Indication: PULMONARY ARTERIAL HYPERTENSION
     Route: 048
     Dates: start: 20170126
  4. ADEMPAS [Suspect]
     Active Substance: RIOCIGUAT
     Indication: PULMONARY ARTERIAL HYPERTENSION
     Route: 048
  5. ADEMPAS [Suspect]
     Active Substance: RIOCIGUAT
     Indication: PULMONARY ARTERIAL HYPERTENSION
     Route: 048

REACTIONS (15)
  - Dizziness [Not Recovered/Not Resolved]
  - Pain [Unknown]
  - Dyspnoea [Not Recovered/Not Resolved]
  - Burning sensation [Unknown]
  - Decreased appetite [Unknown]
  - Heart rate irregular [Unknown]
  - Gingival bleeding [Not Recovered/Not Resolved]
  - Upper respiratory tract infection [Unknown]
  - Fatigue [Not Recovered/Not Resolved]
  - Weight decreased [Unknown]
  - Sputum discoloured [Unknown]
  - Oedema peripheral [Unknown]
  - Cough [Unknown]
  - Blood pressure decreased [Unknown]
  - Dizziness [Unknown]

NARRATIVE: CASE EVENT DATE: 2017
